FAERS Safety Report 23112222 (Version 1)
Quarter: 2023Q4

REPORT INFORMATION
  Report Type: Spontaneous
  Country: US (occurrence: US)
  Receive Date: 20231026
  Receipt Date: 20231026
  Transmission Date: 20240110
  Serious: Yes (Death, Other)
  Sender: FDA-Public Use
  Company Number: US-PURDUE PHARMA-USA-2023-0305516

PATIENT
  Sex: Male

DRUGS (1)
  1. OXYCONTIN [Suspect]
     Active Substance: OXYCODONE HYDROCHLORIDE
     Indication: Product used for unknown indication
     Dosage: 360 TABLET, MONTHLY
     Route: 048

REACTIONS (13)
  - Death [Fatal]
  - Cardiac failure [Unknown]
  - Drug dependence [Unknown]
  - Illness [Unknown]
  - Loss of personal independence in daily activities [Unknown]
  - Anger [Unknown]
  - Abnormal behaviour [Unknown]
  - Fear [Unknown]
  - Emotional distress [Unknown]
  - Stress [Unknown]
  - Depression [Unknown]
  - Product prescribing issue [Unknown]
  - Judgement impaired [Unknown]

NARRATIVE: CASE EVENT DATE: 20140101
